FAERS Safety Report 25078248 (Version 1)
Quarter: 2025Q1

REPORT INFORMATION
  Report Type: Spontaneous
  Country: US (occurrence: None)
  Receive Date: 20250313
  Receipt Date: 20250313
  Transmission Date: 20250409
  Serious: No
  Sender: FDA-CTU
  Company Number: None

PATIENT
  Age: 28 Year
  Sex: Male

DRUGS (5)
  1. ZYPREXA [Suspect]
     Active Substance: OLANZAPINE
  2. HYDROXYZINE HYDROCHLORIDE [Suspect]
     Active Substance: HYDROXYZINE HYDROCHLORIDE
  3. VITAMIN C [Concomitant]
     Active Substance: ASCORBIC ACID
  4. Super B-Complex [Concomitant]
  5. Acetyl L-Carnitine 500mg [Concomitant]

REACTIONS (4)
  - Emotional poverty [None]
  - Anxiety [None]
  - Psychiatric symptom [None]
  - Diarrhoea [None]

NARRATIVE: CASE EVENT DATE: 20250313
